FAERS Safety Report 15625899 (Version 2)
Quarter: 2023Q2

REPORT INFORMATION
  Report Type: Spontaneous
  Country: JP (occurrence: JP)
  Receive Date: 20181116
  Receipt Date: 20230525
  Transmission Date: 20230721
  Serious: Yes (Other)
  Sender: FDA-Public Use
  Company Number: JP-GLAXOSMITHKLINE-JP2018JPN206010

PATIENT
  Age: 7 Decade
  Sex: Male

DRUGS (14)
  1. ZOVIRAX [Suspect]
     Active Substance: ACYCLOVIR
     Indication: Encephalitis autoimmune
     Dosage: UNK
     Route: 041
  2. VANCOMYCIN HYDROCHLORIDE [Suspect]
     Active Substance: VANCOMYCIN HYDROCHLORIDE
     Indication: Pneumonia aspiration
     Dosage: UNK
  3. VANCOMYCIN HYDROCHLORIDE [Suspect]
     Active Substance: VANCOMYCIN HYDROCHLORIDE
     Indication: Urinary tract infection
  4. LEVETIRACETAM [Concomitant]
     Active Substance: LEVETIRACETAM
     Indication: Encephalitis autoimmune
     Dosage: UNK
  5. LEVETIRACETAM [Concomitant]
     Active Substance: LEVETIRACETAM
     Indication: Pneumonia aspiration
  6. LEVETIRACETAM [Concomitant]
     Active Substance: LEVETIRACETAM
     Indication: Urinary tract infection
  7. PHENYTOIN [Concomitant]
     Active Substance: PHENYTOIN
     Indication: Encephalitis autoimmune
     Dosage: UNK
  8. PHENYTOIN [Concomitant]
     Active Substance: PHENYTOIN
     Indication: Pneumonia aspiration
  9. PHENYTOIN [Concomitant]
     Active Substance: PHENYTOIN
     Indication: Urinary tract infection
  10. PIPERACILLIN AND TAZOBACTAM [Concomitant]
     Active Substance: PIPERACILLIN SODIUM\TAZOBACTAM SODIUM
     Indication: Pneumonia aspiration
     Dosage: UNK
  11. PIPERACILLIN AND TAZOBACTAM [Concomitant]
     Active Substance: PIPERACILLIN SODIUM\TAZOBACTAM SODIUM
     Indication: Urinary tract infection
  12. AMPICILLIN AND SULBACTAM [Concomitant]
     Active Substance: AMPICILLIN SODIUM\SULBACTAM SODIUM
     Indication: Pneumonia aspiration
     Dosage: UNK
  13. AMPICILLIN AND SULBACTAM [Concomitant]
     Active Substance: AMPICILLIN SODIUM\SULBACTAM SODIUM
     Indication: Urinary tract infection
  14. LINEZOLID [Concomitant]
     Active Substance: LINEZOLID
     Dosage: UNK

REACTIONS (19)
  - Drug reaction with eosinophilia and systemic symptoms [Recovering/Resolving]
  - Multiple organ dysfunction syndrome [Recovering/Resolving]
  - Acute respiratory distress syndrome [Recovering/Resolving]
  - Acute kidney injury [Recovering/Resolving]
  - Renal impairment [Unknown]
  - Pneumonia [Unknown]
  - Pyrexia [Recovering/Resolving]
  - Erythema [Recovering/Resolving]
  - Skin erosion [Recovering/Resolving]
  - Rash [Recovering/Resolving]
  - Liver disorder [Recovering/Resolving]
  - Lymphocyte morphology abnormal [Recovering/Resolving]
  - Multi-organ disorder [Recovering/Resolving]
  - Urine output decreased [Recovering/Resolving]
  - Condition aggravated [Unknown]
  - Hepatic function abnormal [Unknown]
  - Drug eruption [Unknown]
  - Respiratory disorder [Unknown]
  - Tachypnoea [Unknown]
